FAERS Safety Report 4506774-3 (Version None)
Quarter: 2004Q4

REPORT INFORMATION
  Report Type: 
  Country: None (occurrence: None)
  Receive Date: 20041122
  Receipt Date: 20041112
  Transmission Date: 20050328
  Serious: Yes (Life-Threatening, Hospitalization)
  Sender: FDA-Public Use
  Company Number: DE-ROCHE-386165

PATIENT
  Age: 53 Year
  Sex: Male

DRUGS (2)
  1. CELLCEPT [Suspect]
     Route: 065
  2. SANDIMMUNE [Concomitant]

REACTIONS (2)
  - EMBOLISM [None]
  - GASTRIC PERFORATION [None]
